FAERS Safety Report 11089671 (Version 3)
Quarter: 2017Q2

REPORT INFORMATION
  Report Type: Spontaneous
  Country: AT (occurrence: AT)
  Receive Date: 20150505
  Receipt Date: 20170508
  Transmission Date: 20170829
  Serious: Yes (Hospitalization)
  Sender: FDA-Public Use
  Company Number: AT-SUN PHARMACEUTICAL INDUSTRIES LTD-2015R1-96267

PATIENT
  Age: 79 Year
  Sex: Male

DRUGS (4)
  1. TICAGRELOR [Concomitant]
     Active Substance: TICAGRELOR
     Indication: ANTIPLATELET THERAPY
     Dosage: UNK
     Route: 065
     Dates: start: 2011
  2. ASPIRIN. [Suspect]
     Active Substance: ASPIRIN
     Indication: ANTIPLATELET THERAPY
     Dosage: UNK
     Route: 065
     Dates: start: 2011
  3. IBUPROFEN. [Interacting]
     Active Substance: IBUPROFEN
     Indication: INTERVERTEBRAL DISCITIS
     Dosage: 400 MG, BID
     Route: 065
     Dates: start: 201210
  4. LOW MOLECULAR HEPARIN [Concomitant]
     Active Substance: UNSPECIFIED INGREDIENT
     Indication: PRODUCT USED FOR UNKNOWN INDICATION
     Dosage: UNK
     Route: 042

REACTIONS (2)
  - Drug interaction [Unknown]
  - Drug ineffective [Unknown]

NARRATIVE: CASE EVENT DATE: 201210
